FAERS Safety Report 14032355 (Version 2)
Quarter: 2017Q4

REPORT INFORMATION
  Report Type: Spontaneous
  Country: US (occurrence: US)
  Receive Date: 20171002
  Receipt Date: 20171031
  Transmission Date: 20180321
  Serious: Yes (Other)
  Sender: FDA-Public Use
  Company Number: US-PFIZER INC-2017422464

PATIENT
  Age: 65 Year
  Sex: Female

DRUGS (1)
  1. LYRICA [Suspect]
     Active Substance: PREGABALIN
     Indication: FIBROCYSTIC BREAST DISEASE
     Dosage: UNK
     Dates: start: 2014

REACTIONS (6)
  - Product use in unapproved indication [Unknown]
  - Fall [Unknown]
  - Hypersensitivity [Unknown]
  - Renal failure [Unknown]
  - Gait disturbance [Unknown]
  - Hallucination [Unknown]
